FAERS Safety Report 4891420-X (Version None)
Quarter: 2005Q4

REPORT INFORMATION
  Report Type: 
  Country: None (occurrence: None)
  Receive Date: 20051220
  Receipt Date: 20051024
  Transmission Date: 20060501
  Serious: Yes (Other)
  Sender: FDA-Public Use
  Company Number: 422519

PATIENT
  Sex: Female

DRUGS (2)
  1. BONIVA [Suspect]
     Dosage: ORAL
     Route: 048
     Dates: start: 20051022
  2. ALKA-SELTZER (ASPIRIN/CLCIUM PHOSPHATE/CITRIC ACID/SODIUM BICARBONATE) [Suspect]
     Dates: start: 20051023

REACTIONS (2)
  - DRUG INTERACTION [None]
  - DYSPEPSIA [None]
